FAERS Safety Report 8935120 (Version 3)
Quarter: 2013Q2

REPORT INFORMATION
  Report Type: Spontaneous
  Country: US (occurrence: US)
  Receive Date: 20121129
  Receipt Date: 20130628
  Transmission Date: 20140414
  Serious: Yes (Hospitalization, Other)
  Sender: FDA-Public Use
  Company Number: US-009507513-1206USA04490

PATIENT
  Sex: Female
  Weight: 50.79 kg

DRUGS (3)
  1. FOSAMAX [Suspect]
     Indication: OSTEOPOROSIS
     Dosage: 70 MG,QW
     Route: 048
     Dates: start: 20010228
  2. FOSAMAX [Suspect]
     Indication: OSTEOPOROSIS
     Dosage: 70 MG QW
     Route: 048
     Dates: start: 20080320
  3. ALENDRONATE SODIUM [Suspect]
     Indication: OSTEOPOROSIS
     Dosage: 70 MG, QW
     Route: 048
     Dates: start: 20080320, end: 201103

REACTIONS (36)
  - Femur fracture [Unknown]
  - Open reduction of fracture [Unknown]
  - Fall [Unknown]
  - Fall [Unknown]
  - Femur fracture [Unknown]
  - Open reduction of fracture [Unknown]
  - Hypophagia [Unknown]
  - Pulmonary embolism [Unknown]
  - Gastrooesophageal reflux disease [Unknown]
  - Diarrhoea [Unknown]
  - Constipation [Unknown]
  - Muscle spasms [Unknown]
  - Low turnover osteopathy [Unknown]
  - Hypertension [Not Recovered/Not Resolved]
  - Blood cholesterol increased [Not Recovered/Not Resolved]
  - Migraine [Not Recovered/Not Resolved]
  - Thrombosis [Unknown]
  - Steroid therapy [Unknown]
  - Hypoxia [Unknown]
  - Cataract [Unknown]
  - Tooth extraction [Unknown]
  - Chronic obstructive pulmonary disease [Unknown]
  - Oral surgery [Unknown]
  - Gingivectomy [Unknown]
  - Osteopenia [Unknown]
  - Stress urinary incontinence [Unknown]
  - Adenotonsillectomy [Unknown]
  - Ear operation [Unknown]
  - Rheumatoid arthritis [Unknown]
  - Spinal column stenosis [Unknown]
  - Denture wearer [Recovered/Resolved]
  - Tooth extraction [Unknown]
  - Biopsy bone [Unknown]
  - Pulmonary mass [Unknown]
  - Limb asymmetry [Recovered/Resolved]
  - Osteoarthritis [Unknown]
